FAERS Safety Report 24737630 (Version 1)
Quarter: 2024Q4

REPORT INFORMATION
  Report Type: Spontaneous
  Country: US (occurrence: US)
  Receive Date: 20241216
  Receipt Date: 20241216
  Transmission Date: 20250114
  Serious: No
  Sender: BRISTOL-MYERS SQUIBB COMPANY
  Company Number: US-BRISTOL-MYERS SQUIBB COMPANY-2024-194719

PATIENT
  Age: 64 Year
  Sex: Male
  Weight: 90.26 kg

DRUGS (1)
  1. POMALYST [Suspect]
     Active Substance: POMALIDOMIDE
     Indication: Plasma cell myeloma recurrent
     Route: 048

REACTIONS (4)
  - Pain of skin [Unknown]
  - Skin burning sensation [Unknown]
  - Peripheral swelling [Unknown]
  - Pain in extremity [Unknown]
